FAERS Safety Report 14898996 (Version 1)
Quarter: 2018Q2

REPORT INFORMATION
  Report Type: Spontaneous
  Country: FR (occurrence: FR)
  Receive Date: 20180515
  Receipt Date: 20180515
  Transmission Date: 20180711
  Serious: Yes (Hospitalization)
  Sender: FDA-Public Use
  Company Number: FR-MERCK KGAA-2047841

PATIENT
  Age: 73 Year
  Sex: Female
  Weight: 49 kg

DRUGS (1)
  1. NOVOTHYROX [Suspect]
     Active Substance: LEVOTHYROXINE SODIUM
     Indication: HYPOTHYROIDISM
     Route: 048
     Dates: start: 20170301, end: 20171120

REACTIONS (20)
  - Alopecia [Recovered/Resolved]
  - Syncope [Recovered/Resolved]
  - Heart rate decreased [Recovered/Resolved]
  - Abdominal pain upper [Recovered/Resolved]
  - Poor quality sleep [Recovered/Resolved]
  - Aggression [Recovered/Resolved]
  - Impaired work ability [Recovered/Resolved]
  - Malaise [Recovered/Resolved]
  - Oral discomfort [Recovered/Resolved]
  - Impaired driving ability [Recovered/Resolved]
  - Loss of personal independence in daily activities [Recovered/Resolved]
  - Asthenia [Recovered/Resolved]
  - Gait disturbance [Recovered/Resolved]
  - Loss of consciousness [Recovered/Resolved]
  - Social avoidant behaviour [Recovered/Resolved]
  - Apathy [Recovered/Resolved]
  - Arthralgia [Recovered/Resolved]
  - Mobility decreased [Recovered/Resolved]
  - Night sweats [Recovered/Resolved]
  - Dyspepsia [Recovered/Resolved]

NARRATIVE: CASE EVENT DATE: 201704
